FAERS Safety Report 21658843 (Version 1)
Quarter: 2022Q4

REPORT INFORMATION
  Report Type: Spontaneous
  Country: US (occurrence: US)
  Receive Date: 20221129
  Receipt Date: 20221129
  Transmission Date: 20230113
  Serious: No
  Sender: FDA-Public Use
  Company Number: US-002147023-NVSC2022US276199

PATIENT
  Sex: Male

DRUGS (6)
  1. TACROLIMUS [Suspect]
     Active Substance: TACROLIMUS
     Indication: Dyshidrotic eczema
     Dosage: 1 DOSAGE FORM, BID (1.0 APPLICATION, 30 DAYS, 60 GRAMS, 2 REFILLS. 1(ONE) APPLICATION(S) TOPICAL 2(T
     Route: 065
  2. CLOBETASOL [Concomitant]
     Active Substance: CLOBETASOL
     Indication: Product used for unknown indication
     Dosage: 1 DOSAGE FORM, BID (1.0 APPLICATION, BID, 30 DAYS, 60 GRAMS) (CURRENTLY TAKING, NEEDS RF)
     Route: 065
  3. NAFTIN [Concomitant]
     Active Substance: NAFTIFINE HYDROCHLORIDE
     Indication: Product used for unknown indication
     Dosage: (TOPICAL) UNK
     Route: 065
  4. TRIAMCINOLONE ACETONIDE [Concomitant]
     Active Substance: TRIAMCINOLONE ACETONIDE
     Indication: Product used for unknown indication
     Dosage: UNK (TOPICAL)
     Route: 065
  5. BENTONITE [Concomitant]
     Active Substance: BENTONITE
     Indication: Product used for unknown indication
     Dosage: UNK (POWDER)
     Route: 065
  6. FLAXSEED [Concomitant]
     Active Substance: FLAX SEED
     Indication: Product used for unknown indication
     Dosage: UNK
     Route: 065

REACTIONS (5)
  - Skin irritation [Unknown]
  - Pruritus [Unknown]
  - Rash [Unknown]
  - Dry skin [Unknown]
  - Drug ineffective [Unknown]
